FAERS Safety Report 11378682 (Version 1)
Quarter: 2015Q3

REPORT INFORMATION
  Report Type: Spontaneous
  Country: US (occurrence: None)
  Receive Date: 20150812
  Receipt Date: 20150812
  Transmission Date: 20151125
  Serious: No
  Sender: FDA-Public Use
  Company Number: None

PATIENT
  Age: 65 Year
  Sex: Male
  Weight: 72.5 kg

DRUGS (1)
  1. LISINOPRIL. [Suspect]
     Active Substance: LISINOPRIL
     Indication: HYPERTENSION
     Route: 048
     Dates: start: 20150110, end: 20150726

REACTIONS (6)
  - Pharyngeal oedema [None]
  - Pruritus [None]
  - Angioedema [None]
  - Lip swelling [None]
  - Rash [None]
  - Respiratory failure [None]

NARRATIVE: CASE EVENT DATE: 20150726
